FAERS Safety Report 11108186 (Version 2)
Quarter: 2015Q2

REPORT INFORMATION
  Report Type: Spontaneous
  Country: BR (occurrence: BR)
  Receive Date: 20150512
  Receipt Date: 20150616
  Transmission Date: 20150821
  Serious: Yes (Life-Threatening, Hospitalization, Other)
  Sender: FDA-Public Use
  Company Number: BR-ELI_LILLY_AND_COMPANY-BR201505001707

PATIENT
  Age: 27 Year
  Sex: Male
  Weight: 58 kg

DRUGS (12)
  1. PROPRANOLOL [Concomitant]
     Active Substance: PROPRANOLOL\PROPRANOLOL HYDROCHLORIDE
     Dosage: UNK, UNKNOWN
     Route: 065
  2. DOMPERIDONA [Concomitant]
     Dosage: UNK, UNKNOWN
     Route: 065
  3. URSACOL [Concomitant]
     Active Substance: URSODIOL
     Dosage: UNK, UNKNOWN
     Route: 065
  4. AZATIOPRINA                        /00001501/ [Concomitant]
     Active Substance: AZATHIOPRINE
     Dosage: UNK, UNKNOWN
     Route: 065
  5. ALENDRONATO [Concomitant]
     Dosage: UNK, UNKNOWN
     Route: 065
  6. CIPROFIBRATO [Concomitant]
     Active Substance: CIPROFIBRATE
     Dosage: UNK, UNKNOWN
     Route: 065
  7. HUMULIN R [Suspect]
     Active Substance: INSULIN HUMAN
     Indication: DIABETES MELLITUS
     Dosage: UNK, UNKNOWN
     Route: 065
     Dates: start: 1998
  8. VITAMINA D3 [Concomitant]
     Dosage: UNK, UNKNOWN
     Route: 065
  9. CARBONATO DE CALCIO [Concomitant]
     Dosage: UNK, UNKNOWN
     Route: 065
  10. ACETILCISTEINA [Concomitant]
     Active Substance: ACETYLCYSTEINE
     Dosage: UNK, UNKNOWN
     Route: 065
  11. PREDNISONA [Concomitant]
     Active Substance: PREDNISONE
     Dosage: UNK, UNKNOWN
     Route: 065
  12. OMEPRAZOL                          /00661201/ [Concomitant]
     Active Substance: OMEPRAZOLE
     Dosage: UNK, UNKNOWN
     Route: 065

REACTIONS (10)
  - Blood glucose increased [Not Recovered/Not Resolved]
  - Hepatitis [Recovered/Resolved]
  - Malnutrition [Not Recovered/Not Resolved]
  - Weight decreased [Not Recovered/Not Resolved]
  - Fluid retention [Recovered/Resolved]
  - Liver disorder [Not Recovered/Not Resolved]
  - Bacterial infection [Not Recovered/Not Resolved]
  - Cellulitis [Not Recovered/Not Resolved]
  - Pain in extremity [Not Recovered/Not Resolved]
  - Malaise [Not Recovered/Not Resolved]

NARRATIVE: CASE EVENT DATE: 20150416
